FAERS Safety Report 8471960-7 (Version None)
Quarter: 2012Q2

REPORT INFORMATION
  Report Type: 
  Country: None (occurrence: None)
  Receive Date: 20120627
  Receipt Date: 20120627
  Transmission Date: 20120825
  Serious: Yes (Death, Other)
  Sender: FDA-Public Use
  Company Number: JP-BAYER-2012-020177

PATIENT
  Age: 60 Year
  Sex: Female

DRUGS (2)
  1. CORTICOSTEROIDS [Concomitant]
     Indication: VISUAL IMPAIRMENT
  2. BETASERON [Suspect]
     Indication: MULTIPLE SCLEROSIS
     Dosage: UNK
     Route: 058

REACTIONS (7)
  - DEATH [None]
  - PNEUMONIA [None]
  - SEPSIS [None]
  - MALAISE [None]
  - ADVERSE DRUG REACTION [None]
  - NEUROMYELITIS OPTICA [None]
  - URINARY TRACT INFECTION [None]
